FAERS Safety Report 5404305-7 (Version None)
Quarter: 2007Q3

REPORT INFORMATION
  Report Type: 
  Country: None (occurrence: None)
  Receive Date: 20070730
  Receipt Date: 20070725
  Transmission Date: 20080115
  Serious: Yes (Death)
  Sender: FDA-Public Use
  Company Number: 6035572

PATIENT
  Age: 15 Year
  Sex: Female

DRUGS (2)
  1. AMLODIPINE [Suspect]
     Indication: DRUG USE FOR UNKNOWN INDICATION
     Dosage: 140 MG (140 MG, 1 IN 1 DONCE)
  2. MEFENAMIC ACID [Concomitant]

REACTIONS (3)
  - CARDIAC ARREST [None]
  - OVERDOSE [None]
  - SHOCK [None]
